FAERS Safety Report 7920850-4 (Version None)
Quarter: 2011Q4

REPORT INFORMATION
  Report Type: 
  Country: None (occurrence: None)
  Receive Date: 20111117
  Receipt Date: 20110724
  Transmission Date: 20120403
  Serious: No
  Sender: FDA-Public Use
  Company Number: US-GLAXOSMITHKLINE-A0941272A

PATIENT
  Age: 64 Year
  Sex: Female
  Weight: 60.2 kg

DRUGS (1)
  1. VOTRIENT [Suspect]
     Indication: RENAL CANCER
     Dosage: 800MG PER DAY
     Dates: start: 20110627, end: 20110920

REACTIONS (2)
  - MALAISE [None]
  - DIARRHOEA [None]
